FAERS Safety Report 5808495-3 (Version None)
Quarter: 2008Q3

REPORT INFORMATION
  Report Type: 
  Country: None (occurrence: None)
  Receive Date: 20080714
  Receipt Date: 20080704
  Transmission Date: 20090109
  Serious: Yes (Hospitalization)
  Sender: FDA-Public Use
  Company Number: JP-AMGEN-US293440

PATIENT
  Sex: Female

DRUGS (2)
  1. ENBREL [Suspect]
     Indication: RHEUMATOID ARTHRITIS
     Dosage: UNKNOWN
     Route: 058
     Dates: start: 20060101, end: 20080601
  2. METHOTREXATE [Concomitant]
     Dosage: UNKNOWN
     Route: 065

REACTIONS (2)
  - GLOMERULONEPHRITIS [None]
  - INTERSTITIAL LUNG DISEASE [None]
